FAERS Safety Report 8759214 (Version 1)
Quarter: 2012Q4

REPORT INFORMATION
  Report Type: 
  Country: US (occurrence: US)
  Receive Date: 20120829
  Receipt Date: 20120829
  Transmission Date: 20130627
  Serious: Yes (Hospitalization)
  Sender: FDA-Public Use
  Company Number: US-WATSON-2012-14888

PATIENT
  Age: 50 Year
  Sex: Male

DRUGS (2)
  1. PREDNISONE (UNKNOWN) [Suspect]
     Indication: EMPHYSEMA
     Dosage: 20 mg, daily
     Route: 065
  2. CLARITHROMYCIN [Suspect]
     Indication: BRONCHITIS BACTERIAL
     Dosage: 500 mg, bid
     Route: 065

REACTIONS (2)
  - Psychotic disorder [Recovered/Resolved]
  - Drug interaction [Not Recovered/Not Resolved]
